FAERS Safety Report 13184545 (Version 1)
Quarter: 2017Q1

REPORT INFORMATION
  Report Type: Spontaneous
  Country: US (occurrence: US)
  Receive Date: 20170203
  Receipt Date: 20170203
  Transmission Date: 20170428
  Serious: Yes (Life-Threatening, Hospitalization, Disabling)
  Sender: FDA-Public Use
  Company Number: None

PATIENT
  Age: 82 Year
  Sex: Male
  Weight: 82 kg

DRUGS (2)
  1. WARFARIN [Suspect]
     Active Substance: WARFARIN
     Indication: MITRAL VALVE REPAIR
     Dosage: MG PO
     Route: 048
     Dates: start: 20130801, end: 20170104
  2. WARFARIN [Suspect]
     Active Substance: WARFARIN
     Indication: ATRIAL FIBRILLATION
     Dosage: MG PO
     Route: 048
     Dates: start: 20130801, end: 20170104

REACTIONS (2)
  - Haemorrhagic stroke [None]
  - Anticoagulation drug level below therapeutic [None]

NARRATIVE: CASE EVENT DATE: 20170104
